FAERS Safety Report 6735625-1 (Version None)
Quarter: 2010Q2

REPORT INFORMATION
  Report Type: 
  Country: None (occurrence: None)
  Receive Date: 20100521
  Receipt Date: 20100511
  Transmission Date: 20101027
  Serious: Yes (Hospitalization)
  Sender: FDA-Public Use
  Company Number: CA-JNJFOC-20100505675

PATIENT
  Age: 60 Year
  Sex: Male
  Weight: 96.5 kg

DRUGS (26)
  1. REMICADE [Suspect]
     Indication: ANKYLOSING SPONDYLITIS
     Route: 042
  2. REMICADE [Suspect]
     Route: 042
  3. REMICADE [Suspect]
     Route: 042
  4. FLURAZEPAM [Concomitant]
     Indication: SLEEP DISORDER THERAPY
  5. AMITRIPTYLINE [Concomitant]
     Indication: SLEEP DISORDER THERAPY
  6. TEARS NATURALE [Concomitant]
     Indication: DRY EYE
  7. NITROGLYCERIN [Concomitant]
     Indication: ANGINA PECTORIS
  8. CLARITIN [Concomitant]
     Indication: SEASONAL ALLERGY
  9. ACETAMINOPHEN [Concomitant]
     Indication: ANKYLOSING SPONDYLITIS
  10. DOCUSATE SODIUM [Concomitant]
  11. GRAVOL TAB [Concomitant]
     Indication: NAUSEA
  12. LIPITOR [Concomitant]
     Indication: BLOOD CHOLESTEROL
  13. PRED FORTE [Concomitant]
     Indication: EYE DISORDER
  14. ZANTAC [Concomitant]
     Indication: ABDOMINAL PAIN UPPER
  15. ANDRIOL [Concomitant]
  16. ADVAIR DISKUS 100/50 [Concomitant]
     Indication: ASTHMA
  17. PLAVIX [Concomitant]
     Indication: PROPHYLAXIS
  18. DILAUDID [Concomitant]
     Indication: PAIN
  19. DILAUDID [Concomitant]
  20. DILAUDID [Concomitant]
  21. MORPHINE SULFATE [Concomitant]
     Indication: ANKYLOSING SPONDYLITIS
  22. MORPHINE SULFATE [Concomitant]
  23. ZESTRIL [Concomitant]
  24. ZESTRIL [Concomitant]
  25. BISOPROLOL FUMARATE [Concomitant]
     Indication: BLOOD PRESSURE
  26. HYDROCHLOROTHIAZIDE [Concomitant]
     Indication: BLOOD PRESSURE

REACTIONS (2)
  - ARTERIAL INSUFFICIENCY [None]
  - ARTERIAL THROMBOSIS LIMB [None]
